FAERS Safety Report 21211871 (Version 1)
Quarter: 2022Q3

REPORT INFORMATION
  Report Type: Spontaneous
  Country: TR (occurrence: None)
  Receive Date: 20220815
  Receipt Date: 20220815
  Transmission Date: 20221027
  Serious: Yes (Other)
  Sender: FDA-Public Use
  Company Number: TR-ROCHE-3158975

PATIENT
  Age: 50 Year
  Sex: Female

DRUGS (2)
  1. RITUXIMAB [Suspect]
     Active Substance: RITUXIMAB
     Indication: Product used for unknown indication
     Dosage: 4TH SYSTEMATIC TREATMENT
     Route: 065
     Dates: start: 20210701, end: 20210701
  2. RITUXIMAB [Suspect]
     Active Substance: RITUXIMAB
     Dosage: 5TH SYSTEMATIC TREATMENT
     Route: 065
     Dates: start: 20210817, end: 20211007

REACTIONS (1)
  - Bradycardia [Unknown]
